FAERS Safety Report 11674842 (Version 1)
Quarter: 2015Q4

REPORT INFORMATION
  Report Type: Spontaneous
  Country: US (occurrence: US)
  Receive Date: 20151027
  Receipt Date: 20151027
  Transmission Date: 20160304
  Serious: No
  Sender: FDA-Public Use
  Company Number: US-ELI_LILLY_AND_COMPANY-US201007004500

PATIENT
  Sex: Female

DRUGS (1)
  1. FORTEO [Suspect]
     Active Substance: TERIPARATIDE
     Indication: OSTEOPOROSIS
     Dosage: 20 UG, DAILY (1/D)
     Route: 065
     Dates: start: 20090915

REACTIONS (7)
  - Constipation [Unknown]
  - Respiratory disorder [Unknown]
  - Dyspnoea [Unknown]
  - Dyspepsia [Unknown]
  - Chest discomfort [Unknown]
  - Rheumatoid arthritis [Unknown]
  - Adverse drug reaction [Unknown]
